FAERS Safety Report 5145053-0 (Version None)
Quarter: 2006Q4

REPORT INFORMATION
  Report Type: 
  Country: None (occurrence: None)
  Receive Date: 20061107
  Receipt Date: 20060906
  Transmission Date: 20070319
  Serious: Yes (Death)
  Sender: FDA-Public Use
  Company Number: GB-AMGEN-UK192601

PATIENT
  Sex: Male
  Weight: 79 kg

DRUGS (8)
  1. KINERET [Suspect]
     Indication: RHEUMATOID ARTHRITIS
     Route: 065
     Dates: start: 20030501, end: 20040415
  2. METHOTREXATE [Concomitant]
  3. PREDNISOLONE [Concomitant]
  4. CO-PROXAMOL [Concomitant]
  5. DICLOFENAC [Concomitant]
  6. DIDRONEL [Concomitant]
  7. FOLIC ACID [Concomitant]
  8. NEORAL [Concomitant]

REACTIONS (3)
  - NEOPLASM MALIGNANT [None]
  - OESOPHAGEAL CARCINOMA [None]
  - RHEUMATOID ARTHRITIS [None]
